FAERS Safety Report 26004604 (Version 2)
Quarter: 2025Q4

REPORT INFORMATION
  Report Type: Spontaneous
  Country: US (occurrence: US)
  Receive Date: 20251106
  Receipt Date: 20251118
  Transmission Date: 20260118
  Serious: Yes (Life-Threatening, Hospitalization, Other)
  Sender: TEVA
  Company Number: US-TEVA-VS-3387797

PATIENT
  Age: 2 Month
  Sex: Male

DRUGS (4)
  1. PREDNISOLONE [Suspect]
     Active Substance: PREDNISOLONE
     Indication: Lissencephaly
     Dosage: HIGH-DOSE
     Route: 065
  2. VIGABATRIN [Suspect]
     Active Substance: VIGABATRIN
     Indication: Lissencephaly
     Route: 065
  3. VIGABATRIN [Suspect]
     Active Substance: VIGABATRIN
     Indication: Lissencephaly
     Dosage: TIME INTERVAL: 0.33333333 DAYS
     Route: 065
  4. VIGABATRIN [Suspect]
     Active Substance: VIGABATRIN
     Indication: Lissencephaly
     Dosage: TIME INTERVAL: 0.33333333 DAYS
     Route: 065

REACTIONS (11)
  - Drug ineffective [Unknown]
  - Epilepsy [Unknown]
  - Respiratory rate increased [Unknown]
  - Stridor [Unknown]
  - Brain scan abnormal [Recovering/Resolving]
  - Hydrocephalus [Unknown]
  - Neurodevelopmental disorder [Unknown]
  - Tracheomalacia [Unknown]
  - Seizure [Unknown]
  - Intramyelinic oedema [Unknown]
  - Depressed level of consciousness [Unknown]
